FAERS Safety Report 5820852-8 (Version None)
Quarter: 2008Q3

REPORT INFORMATION
  Report Type: 
  Country: None (occurrence: None)
  Receive Date: 20080718
  Receipt Date: 20080718
  Transmission Date: 20090109
  Serious: No
  Sender: FDA-Public Use
  Company Number: None

PATIENT
  Age: 46 Year
  Sex: Female
  Weight: 71.2147 kg

DRUGS (1)
  1. LISINOPRIL [Suspect]
     Indication: HYPERTENSION
     Dosage: 1 DAILY PO
     Route: 048
     Dates: start: 20080707, end: 20080717

REACTIONS (4)
  - COUGH [None]
  - EMOTIONAL DISORDER [None]
  - MYALGIA [None]
  - PAIN [None]
